FAERS Safety Report 10530764 (Version 1)
Quarter: 2014Q4

REPORT INFORMATION
  Report Type: Spontaneous
  Country: US (occurrence: None)
  Receive Date: 20141020
  Receipt Date: 20141020
  Transmission Date: 20150528
  Serious: Yes (Other)
  Sender: FDA-Public Use
  Company Number: None

PATIENT
  Age: 45 Year
  Sex: Female
  Weight: 68.04 kg

DRUGS (1)
  1. MOBIC [Suspect]
     Active Substance: MELOXICAM
     Indication: ARTHRITIS
     Dosage: 1 PILL ONCE DAILY TAKEN BY MOUTH
     Route: 048
     Dates: start: 20141010, end: 20141015

REACTIONS (5)
  - Paraesthesia [None]
  - Hypoaesthesia [None]
  - Muscular weakness [None]
  - Oesophagitis [None]
  - Panic attack [None]

NARRATIVE: CASE EVENT DATE: 20141016
